FAERS Safety Report 7766012-5 (Version None)
Quarter: 2011Q3

REPORT INFORMATION
  Report Type: 
  Country: None (occurrence: None)
  Receive Date: 20110921
  Receipt Date: 20110912
  Transmission Date: 20111222
  Serious: Yes (Other)
  Sender: FDA-Public Use
  Company Number: US-BAYER-201025794NA

PATIENT
  Age: 34 Year
  Sex: Female
  Weight: 63 kg

DRUGS (8)
  1. YASMIN [Suspect]
     Indication: ENDOMETRIOSIS
     Dosage: UNK UNK, QD
     Route: 048
     Dates: start: 20041201, end: 20091001
  2. VICODIN [Concomitant]
     Indication: PAIN
  3. YAZ [Suspect]
     Route: 048
  4. SYNTHROID [Concomitant]
     Indication: HYPOTHYROIDISM
     Dosage: UNK UNK, QD
     Route: 048
     Dates: start: 19930101
  5. DROSPIRENONE AND ETHINYL ESTRADIOL [Suspect]
  6. PEPCID [Concomitant]
     Indication: DYSPEPSIA
  7. GAS X [Concomitant]
  8. ONE-A-DAY WEIGHTSMART [Concomitant]

REACTIONS (9)
  - CHOLECYSTITIS CHRONIC [None]
  - CHEST PAIN [None]
  - BACK PAIN [None]
  - NAUSEA [None]
  - CHOLELITHIASIS [None]
  - INJURY [None]
  - ABDOMINAL PAIN UPPER [None]
  - DYSPNOEA [None]
  - BILIARY COLIC [None]
